FAERS Safety Report 24625753 (Version 1)
Quarter: 2024Q4

REPORT INFORMATION
  Report Type: Spontaneous
  Country: CA (occurrence: CA)
  Receive Date: 20241115
  Receipt Date: 20241115
  Transmission Date: 20250115
  Serious: Yes (Other)
  Sender: Unknown Manufacturer
  Company Number: CA-STALCOR-2024-AER-02491

PATIENT
  Sex: Male

DRUGS (9)
  1. SUGAR MAPLE [Suspect]
     Active Substance: ACER SACCHARUM POLLEN
     Indication: Rhinitis allergic
     Route: 058
  2. DERMATOPHAGOIDES FARINAE\DERMATOPHAGOIDES PTERONYSSINUS [Suspect]
     Active Substance: DERMATOPHAGOIDES FARINAE\DERMATOPHAGOIDES PTERONYSSINUS
     Indication: Rhinitis allergic
     Route: 058
  3. WHITE BIRCH [Suspect]
     Active Substance: BETULA POPULIFOLIA POLLEN
     Indication: Rhinitis allergic
     Route: 058
  4. AGROSTIS GIGANTEA POLLEN\DACTYLIS GLOMERATA POLLEN\PHLEUM PRATENSE POL [Suspect]
     Active Substance: AGROSTIS GIGANTEA POLLEN\DACTYLIS GLOMERATA POLLEN\PHLEUM PRATENSE POLLEN\POA PRATENSIS POLLEN
     Indication: Rhinitis allergic
     Route: 058
  5. MIXED RAGWEED [Suspect]
     Active Substance: AMBROSIA ARTEMISIIFOLIA POLLEN\AMBROSIA TRIFIDA POLLEN
     Indication: Rhinitis allergic
     Route: 058
  6. MUGWORT [Suspect]
     Active Substance: ARTEMISIA VULGARIS POLLEN
     Indication: Rhinitis allergic
     Route: 058
  7. SALINE [Suspect]
     Active Substance: SODIUM CHLORIDE
     Indication: Rhinitis allergic
     Route: 058
  8. SALINE [Suspect]
     Active Substance: SODIUM CHLORIDE
     Indication: Rhinitis allergic
     Route: 058
  9. SALINE [Suspect]
     Active Substance: SODIUM CHLORIDE
     Indication: Rhinitis allergic
     Route: 058
     Dates: end: 20240901

REACTIONS (7)
  - Anaphylactoid reaction [Recovered/Resolved]
  - Diarrhoea [Recovered/Resolved]
  - Abdominal pain [Recovered/Resolved]
  - Nasal congestion [Recovered/Resolved]
  - Rash [Recovered/Resolved]
  - Overdose [Recovered/Resolved]
  - Product label confusion [Recovered/Resolved]
